FAERS Safety Report 5978815-8 (Version None)
Quarter: 2008Q4

REPORT INFORMATION
  Report Type: 
  Country: None (occurrence: None)
  Receive Date: 20081204
  Receipt Date: 20081125
  Transmission Date: 20090506
  Serious: Yes (Disabling)
  Sender: FDA-Public Use
  Company Number: PHHY2008CL29656

PATIENT
  Age: 76 Year
  Sex: Female

DRUGS (3)
  1. TAREG [Suspect]
     Indication: HYPERTENSION
     Dosage: 80 MG, QD
     Dates: start: 20080901
  2. OMEPRAZOLE [Concomitant]
  3. SERETRAN [Concomitant]

REACTIONS (2)
  - FALL [None]
  - PELVIC FRACTURE [None]
